FAERS Safety Report 5655698-7 (Version None)
Quarter: 2008Q1

REPORT INFORMATION
  Report Type: 
  Country: None (occurrence: None)
  Receive Date: 20080212
  Receipt Date: 20070412
  Transmission Date: 20080703
  Serious: Yes (Hospitalization)
  Sender: FDA-Public Use
  Company Number: MC200700313

PATIENT
  Age: 78 Year
  Sex: Male
  Weight: 90.7 kg

DRUGS (5)
  1. ANGIOMAX [Suspect]
     Indication: PERCUTANEOUS CORONARY INTERVENTION
     Dosage: 0.75 MG/KG, BOLUS, IV BOLUS
     Route: 040
     Dates: start: 20070406, end: 20070406
  2. ANGIOMAX [Suspect]
     Dosage: 1.75 MG/KG, HR, INTRAVENOUS
     Route: 042
     Dates: start: 20070406, end: 20070406
  3. ASPIRIN [Concomitant]
  4. PLAVIX [Concomitant]
  5. MORPHINE [Concomitant]

REACTIONS (1)
  - SUBARACHNOID HAEMORRHAGE [None]
